FAERS Safety Report 21822264 (Version 1)
Quarter: 2023Q1

REPORT INFORMATION
  Report Type: Spontaneous
  Country: IE (occurrence: None)
  Receive Date: 20230105
  Receipt Date: 20230105
  Transmission Date: 20230417
  Serious: Yes (Other)
  Sender: FDA-Public Use
  Company Number: IE-Unichem Pharmaceuticals (USA) Inc-UCM202212-001376

PATIENT
  Age: 76 Year
  Sex: Male

DRUGS (8)
  1. METRONIDAZOLE [Suspect]
     Active Substance: METRONIDAZOLE
     Indication: Product used for unknown indication
     Route: 048
  2. CEFUROXIME [Suspect]
     Active Substance: CEFUROXIME
     Indication: Product used for unknown indication
     Route: 042
  3. CEFUROXIME [Suspect]
     Active Substance: CEFUROXIME
     Dosage: INCREASED TO 1.5MG
     Route: 042
  4. DAPTOMYCIN [Suspect]
     Active Substance: DAPTOMYCIN
     Indication: Product used for unknown indication
     Route: 042
  5. DAPTOMYCIN [Suspect]
     Active Substance: DAPTOMYCIN
     Dosage: INCREASED TO 1.5MG
     Route: 042
  6. ASPIRIN [Concomitant]
     Active Substance: ASPIRIN
     Indication: Product used for unknown indication
  7. FINASTERIDE [Concomitant]
     Active Substance: FINASTERIDE
     Indication: Product used for unknown indication
  8. LANSOPRAZOLE [Concomitant]
     Active Substance: LANSOPRAZOLE
     Indication: Product used for unknown indication

REACTIONS (3)
  - Delirium [Recovered/Resolved]
  - Encephalopathy [Recovered/Resolved]
  - Myoclonus [Recovered/Resolved]
